FAERS Safety Report 9606446 (Version 2)
Quarter: 2013Q4

REPORT INFORMATION
  Report Type: Spontaneous
  Country: US (occurrence: US)
  Receive Date: 20131008
  Receipt Date: 20131024
  Transmission Date: 20140711
  Serious: Yes (Other)
  Sender: FDA-Public Use
  Company Number: US-AMGEN-USASP2013052380

PATIENT
  Sex: Female
  Weight: 66.21 kg

DRUGS (1)
  1. PROLIA [Suspect]
     Indication: OSTEOPOROSIS
     Dosage: UNK UNK, Q6MO
     Route: 065
     Dates: start: 201202, end: 201309

REACTIONS (3)
  - Arthritis infective [Unknown]
  - Injury [Unknown]
  - Cellulitis [Recovered/Resolved]
